FAERS Safety Report 6559938-1 (Version None)
Quarter: 2010Q1

REPORT INFORMATION
  Report Type: 
  Country: None (occurrence: None)
  Receive Date: 20100129
  Receipt Date: 20091021
  Transmission Date: 20100710
  Serious: Yes (Other)
  Sender: FDA-Public Use
  Company Number: US-ABBOTT-09P-163-0597930-00

PATIENT
  Sex: Female
  Weight: 90.346 kg

DRUGS (11)
  1. HUMIRA [Suspect]
     Indication: RHEUMATOID ARTHRITIS
     Dates: start: 20090101
  2. METHOTREXATE [Concomitant]
     Indication: RHEUMATOID ARTHRITIS
     Dosage: 4 TABS BID ONCE A WEEK = 8 TABLETS WEEKLY
     Dates: start: 20060101
  3. HYDROCHLOROTHIAZIDE [Concomitant]
     Indication: HYPERTENSION
  4. PREDNISONE [Concomitant]
     Indication: RHEUMATOID ARTHRITIS
  5. FLUOXETINE [Concomitant]
     Indication: ANXIETY
  6. NORVASC [Concomitant]
     Indication: HYPERTENSION
  7. FOLIC ACID [Concomitant]
     Indication: RHEUMATOID ARTHRITIS
  8. GABAPENTIN [Concomitant]
     Indication: POST HERPETIC NEURALGIA
  9. METHOCARBAMOL [Concomitant]
     Indication: FIBROMYALGIA
  10. METHOCARBAMOL [Concomitant]
     Indication: RHEUMATOID ARTHRITIS
  11. ETODOLAC [Concomitant]
     Indication: ANTIINFLAMMATORY THERAPY

REACTIONS (1)
  - SINUSITIS [None]
